FAERS Safety Report 4420507-0 (Version None)
Quarter: 2004Q3

REPORT INFORMATION
  Report Type: 
  Country: None (occurrence: None)
  Receive Date: 20040809
  Receipt Date: 20040317
  Transmission Date: 20050211
  Serious: No
  Sender: FDA-Public Use
  Company Number: US-GLAXOSMITHKLINE-A0503197A

PATIENT
  Sex: Female

DRUGS (3)
  1. PAXIL CR [Suspect]
     Indication: DEPRESSION
     Route: 048
     Dates: start: 20030225, end: 20040225
  2. NEXIUM [Concomitant]
  3. THYROID TAB [Concomitant]

REACTIONS (6)
  - ABDOMINAL PAIN UPPER [None]
  - CONFUSIONAL STATE [None]
  - DIARRHOEA [None]
  - HYPOAESTHESIA ORAL [None]
  - NAUSEA [None]
  - WEIGHT INCREASED [None]
